FAERS Safety Report 5236719-2 (Version None)
Quarter: 2007Q1

REPORT INFORMATION
  Report Type: 
  Country: None (occurrence: None)
  Receive Date: 20070209
  Receipt Date: 20070124
  Transmission Date: 20070707
  Serious: Yes (Death)
  Sender: FDA-Public Use
  Company Number: 2006002158

PATIENT
  Age: 51 Year
  Sex: Male

DRUGS (1)
  1. ERLOTINIB (TABLET)  (ERLOTINIB HCL) [Suspect]
     Indication: NON-SMALL CELL LUNG CANCER
     Dosage: 150 MG (QD); ORAL
     Route: 048
     Dates: start: 20060818, end: 20061012

REACTIONS (4)
  - DUODENAL ULCER HAEMORRHAGE [None]
  - DUODENAL ULCER PERFORATION [None]
  - MULTI-ORGAN FAILURE [None]
  - RESPIRATORY FAILURE [None]
